FAERS Safety Report 4268667-9 (Version None)
Quarter: 2004Q1

REPORT INFORMATION
  Report Type: 
  Country: None (occurrence: None)
  Receive Date: 20040108
  Receipt Date: 20031229
  Transmission Date: 20041129
  Serious: Yes (Disabling)
  Sender: FDA-Public Use
  Company Number: 2004000175

PATIENT
  Age: 46 Year
  Sex: Female

DRUGS (1)
  1. RELPAX [Suspect]
     Indication: MIGRAINE
     Dosage: 40 MG (PRN), ORAL
     Route: 048
     Dates: start: 20030919

REACTIONS (1)
  - PSYCHIATRIC SYMPTOM [None]
